FAERS Safety Report 7190790-X (Version None)
Quarter: 2010Q4

REPORT INFORMATION
  Report Type: 
  Country: None (occurrence: None)
  Receive Date: 20101223
  Receipt Date: 20100806
  Transmission Date: 20110411
  Serious: No
  Sender: FDA-Public Use
  Company Number: US-AMGEN-KDL429664

PATIENT

DRUGS (9)
  1. ENBREL [Suspect]
     Indication: PRODUCT USED FOR UNKNOWN INDICATION
     Dosage: 50 MG, QWK
     Route: 058
  2. HUMALOG-HUMAJECT [Concomitant]
     Dosage: 100 ML, UNK
  3. ALFUZOSIN [Concomitant]
     Dosage: 10 MG, UNK
  4. METHOTREXATE [Concomitant]
     Dosage: 2.5 MG, UNK
  5. INSULIN GLARGINE [Concomitant]
     Dosage: UNK UNK, UNK
  6. METOPROLOL TARTRATE [Concomitant]
     Dosage: 50 MG, UNK
  7. LISINOPRIL [Concomitant]
     Dosage: 10 MG, UNK
  8. FOLIC ACID [Concomitant]
     Dosage: 1 MG, UNK
  9. DUTASTERIDE [Concomitant]
     Dosage: .5 MG, UNK

REACTIONS (1)
  - CONTUSION [None]
